FAERS Safety Report 21781732 (Version 1)
Quarter: 2022Q4

REPORT INFORMATION
  Report Type: Spontaneous
  Country: DK (occurrence: DK)
  Receive Date: 20221227
  Receipt Date: 20221227
  Transmission Date: 20230113
  Serious: Yes (Other)
  Sender: FDA-Public Use
  Company Number: DK-STERISCIENCE B.V.-2022-ST-000336

PATIENT
  Age: 70 Year
  Sex: Female

DRUGS (6)
  1. METOPROLOL [Suspect]
     Active Substance: METOPROLOL
     Indication: Product used for unknown indication
     Dosage: UNK
     Route: 065
  2. CARBAMAZEPINE [Suspect]
     Active Substance: CARBAMAZEPINE
     Indication: Ulcer
     Dosage: UNK
     Route: 065
  3. AZATHIOPRINE [Concomitant]
     Active Substance: AZATHIOPRINE
     Indication: Pemphigoid
     Dosage: UNK
     Route: 065
  4. PREDNISOLONE [Concomitant]
     Active Substance: PREDNISOLONE
     Indication: Pemphigoid
     Dosage: UNK
     Route: 065
  5. DICLOXACILLIN [Concomitant]
     Active Substance: DICLOXACILLIN
     Indication: Staphylococcal infection
     Dosage: UNK
     Route: 065
  6. VALACYCLOVIR HYDROCHLORIDE [Concomitant]
     Active Substance: VALACYCLOVIR HYDROCHLORIDE
     Indication: Oral herpes
     Dosage: UNK
     Route: 065

REACTIONS (1)
  - Linear IgA disease [Recovered/Resolved]
